FAERS Safety Report 8192057 (Version 3)
Quarter: 2013Q1

REPORT INFORMATION
  Report Type: Spontaneous
  Country: US (occurrence: US)
  Receive Date: 20111020
  Receipt Date: 20130212
  Transmission Date: 20140127
  Serious: Yes (Hospitalization)
  Sender: FDA-Public Use
  Company Number: US-ELI_LILLY_AND_COMPANY-US201110002323

PATIENT
  Sex: Female
  Weight: 62.14 kg

DRUGS (9)
  1. FORTEO [Suspect]
     Indication: OSTEOPOROSIS
     Dosage: 20 UG, QD
     Route: 058
     Dates: start: 20110907
  2. FORTEO [Suspect]
     Dosage: 20 UG, QD
     Route: 058
  3. FORTEO [Suspect]
     Dosage: 20 UG, QD
     Route: 058
     Dates: start: 20110907
  4. SYNTHROID [Concomitant]
  5. SIMVASTATIN [Concomitant]
  6. TYLENOL                                 /SCH/ [Concomitant]
  7. LISINOPRIL [Concomitant]
  8. ANTIHYPERTENSIVES [Concomitant]
  9. CALCIUM +VIT D [Concomitant]

REACTIONS (7)
  - Herpes zoster [Recovered/Resolved]
  - Hypertension [Recovered/Resolved]
  - Pain [Not Recovered/Not Resolved]
  - Scab [Not Recovered/Not Resolved]
  - Retching [Recovered/Resolved]
  - Vitamin D decreased [Unknown]
  - Blood calcium increased [Unknown]
